FAERS Safety Report 17724540 (Version 3)
Quarter: 2020Q3

REPORT INFORMATION
  Report Type: Report from Study
  Country: US (occurrence: US)
  Receive Date: 20200429
  Receipt Date: 20200807
  Transmission Date: 20201102
  Serious: Yes (Other)
  Sender: FDA-Public Use
  Company Number: US-BIOVITRUM-2020US0273

PATIENT
  Age: 79 Year
  Sex: Female

DRUGS (2)
  1. KINERET [Suspect]
     Active Substance: ANAKINRA
     Route: 058
     Dates: start: 20190404
  2. KINERET [Suspect]
     Active Substance: ANAKINRA
     Indication: JUVENILE IDIOPATHIC ARTHRITIS
     Route: 058
     Dates: start: 20190409

REACTIONS (12)
  - Injection site reaction [Unknown]
  - Injection site pruritus [Unknown]
  - Temperature intolerance [Unknown]
  - Injection site swelling [Unknown]
  - Injection site bruising [Unknown]
  - Needle issue [Unknown]
  - Off label use [Unknown]
  - Injection site pain [Unknown]
  - Injection site urticaria [Unknown]
  - Injection site erythema [Unknown]
  - Multiple sclerosis [Unknown]
  - Alopecia [Unknown]

NARRATIVE: CASE EVENT DATE: 20190409
